FAERS Safety Report 24836818 (Version 1)
Quarter: 2025Q1

REPORT INFORMATION
  Report Type: Spontaneous
  Country: CN (occurrence: CN)
  Receive Date: 20250113
  Receipt Date: 20250113
  Transmission Date: 20250409
  Serious: Yes (Hospitalization)
  Sender: MYLAN
  Company Number: CN-MYLANLABS-2025M1001371

PATIENT
  Age: 69 Year
  Sex: Male
  Weight: 55 kg

DRUGS (10)
  1. PREGABALIN [Suspect]
     Active Substance: PREGABALIN
     Indication: Neuropathy peripheral
     Dosage: 75 MILLIGRAM, BID
     Route: 048
     Dates: start: 20241123
  2. METHYLCOBALAMIN [Suspect]
     Active Substance: METHYLCOBALAMIN
     Indication: Neuropathy peripheral
     Dosage: 0.5 MILLIGRAM, TID
     Route: 048
     Dates: start: 20241023
  3. VITAMIN B1 [Suspect]
     Active Substance: THIAMINE HYDROCHLORIDE
     Indication: Neuropathy peripheral
     Dosage: 10 MILLIGRAM, TID
     Route: 048
     Dates: start: 20241215
  4. CELECOXIB [Concomitant]
     Active Substance: CELECOXIB
     Indication: Pain in extremity
     Dosage: 0.2 MILLIGRAM, BID
     Route: 048
     Dates: start: 20240812
  5. FERROUS SUCCINATE [Concomitant]
     Active Substance: FERROUS SUCCINATE
     Indication: Anaemia
     Dosage: 0.1 GRAM, QD
     Route: 048
     Dates: start: 20240911
  6. ZOLPIDEM TARTRATE [Concomitant]
     Active Substance: ZOLPIDEM TARTRATE
     Indication: Insomnia
     Dosage: 10 MILLIGRAM, PM
     Route: 048
     Dates: start: 20241113
  7. CAPECITABINE [Concomitant]
     Active Substance: CAPECITABINE
     Indication: Gastric cancer
     Dosage: UNK, Q3W (750 MILLIGRAM/SQ. METER, Q3W, D1-14,)
     Route: 048
     Dates: start: 20240730, end: 20241127
  8. LEUCOGEN [Concomitant]
     Active Substance: LEUCOGEN
     Indication: Platelet count decreased
     Dosage: 40 MILLIGRAM, TID
     Route: 048
     Dates: start: 20241202
  9. MEGESTROL ACETATE [Concomitant]
     Active Substance: MEGESTROL ACETATE
     Indication: Decreased appetite
     Dosage: 80 MILLIGRAM, BID
     Route: 048
     Dates: start: 20241202
  10. POTASSIUM CHLORIDE [Concomitant]
     Active Substance: POTASSIUM CHLORIDE
     Indication: Hypokalaemia
     Dosage: 1 GRAM, BID
     Route: 048
     Dates: start: 20241202

REACTIONS (1)
  - Therapeutic product effect incomplete [Unknown]
